APPROVED DRUG PRODUCT: FLUPHENAZINE HYDROCHLORIDE
Active Ingredient: FLUPHENAZINE HYDROCHLORIDE
Strength: 5MG
Dosage Form/Route: TABLET;ORAL
Application: A216649 | Product #003
Applicant: APOTEX INC
Approved: Jul 15, 2022 | RLD: No | RS: No | Type: DISCN